FAERS Safety Report 25906926 (Version 3)
Quarter: 2025Q4

REPORT INFORMATION
  Report Type: Report from Study
  Country: CA (occurrence: CA)
  Receive Date: 20251010
  Receipt Date: 20251205
  Transmission Date: 20260117
  Serious: Yes (Other)
  Sender: SAMSUNG BIOEPIS
  Company Number: CA-SAMSUNG BIOEPIS-SB-2025-21481

PATIENT
  Age: 12 Year
  Sex: Male

DRUGS (7)
  1. RENFLEXIS [Suspect]
     Active Substance: INFLIXIMAB-ABDA
     Indication: Crohn^s disease
     Dates: start: 20250311
  2. RENFLEXIS [Suspect]
     Active Substance: INFLIXIMAB-ABDA
  3. RENFLEXIS [Suspect]
     Active Substance: INFLIXIMAB-ABDA
     Route: 042
     Dates: start: 20250311
  4. BIAXIN [Suspect]
     Active Substance: CLARITHROMYCIN
     Indication: Cough
  5. BIAXIN [Suspect]
     Active Substance: CLARITHROMYCIN
     Indication: Crepitations
  6. BIAXIN [Suspect]
     Active Substance: CLARITHROMYCIN
     Indication: Wheezing
  7. PREVACID [Concomitant]
     Active Substance: LANSOPRAZOLE
     Indication: Product used for unknown indication
     Dosage: TAPPERING OFF;

REACTIONS (13)
  - Haematochezia [Not Recovered/Not Resolved]
  - Headache [Not Recovered/Not Resolved]
  - Nausea [Not Recovered/Not Resolved]
  - Dyspepsia [Not Recovered/Not Resolved]
  - Abdominal discomfort [Not Recovered/Not Resolved]
  - Fatigue [Unknown]
  - Decreased appetite [Unknown]
  - Cough [Unknown]
  - Crepitations [Unknown]
  - Wheezing [Unknown]
  - Diarrhoea [Unknown]
  - Helicobacter infection [Recovered/Resolved]
  - Product use issue [Unknown]
